FAERS Safety Report 7928046-7 (Version None)
Quarter: 2011Q4

REPORT INFORMATION
  Report Type: 
  Country: None (occurrence: None)
  Receive Date: 20111118
  Receipt Date: 20111109
  Transmission Date: 20120403
  Serious: Yes (Hospitalization, Other)
  Sender: FDA-Public Use
  Company Number: US-BAYER-2011-045955

PATIENT
  Age: 17 Year
  Sex: Female
  Weight: 95.51 kg

DRUGS (4)
  1. YAZ [Suspect]
     Indication: PREMENSTRUAL SYNDROME
  2. SERTRALINE HYDROCHLORIDE [Concomitant]
     Indication: DEPRESSION
     Dosage: 50 MG, UNK
     Dates: start: 20090901, end: 20091101
  3. YAZ [Suspect]
     Indication: MENSTRUATION IRREGULAR
     Dosage: UNK
     Dates: start: 20070701, end: 20091001
  4. ADDERALL 5 [Concomitant]
     Indication: ATTENTION DEFICIT/HYPERACTIVITY DISORDER
     Dosage: UNK
     Route: 048
     Dates: start: 20070201, end: 20091001

REACTIONS (10)
  - EMOTIONAL DISTRESS [None]
  - SOLID PSEUDOPAPILLARY TUMOUR OF THE PANCREAS [None]
  - INJURY [None]
  - GALLBLADDER INJURY [None]
  - PAIN [None]
  - PANCREATIC INJURY [None]
  - CHOLELITHIASIS [None]
  - SPLENIC INJURY [None]
  - GENERAL PHYSICAL HEALTH DETERIORATION [None]
  - ANXIETY [None]
